FAERS Safety Report 17021040 (Version 1)
Quarter: 2019Q4

REPORT INFORMATION
  Report Type: Report from Study
  Country: CA (occurrence: CA)
  Receive Date: 20191112
  Receipt Date: 20191112
  Transmission Date: 20200122
  Serious: Yes (Hospitalization)
  Sender: FDA-Public Use
  Company Number: CA-PFIZER INC-2019484490

PATIENT
  Age: 52 Year
  Sex: Female

DRUGS (15)
  1. GABAPENTIN. [Concomitant]
     Active Substance: GABAPENTIN
     Route: 065
  2. COSENTYX [Suspect]
     Active Substance: SECUKINUMAB
     Dosage: 300 MG, WEEKLY
     Route: 058
  3. CLOBETASOL [Concomitant]
     Active Substance: CLOBETASOL
     Route: 065
  4. METHOTREXATE SODIUM. [Suspect]
     Active Substance: METHOTREXATE SODIUM
     Route: 065
  5. COSENTYX [Suspect]
     Active Substance: SECUKINUMAB
     Dosage: UNK
     Route: 058
  6. ACITRETIN. [Concomitant]
     Active Substance: ACITRETIN
     Route: 065
  7. RAMIPRIL. [Suspect]
     Active Substance: RAMIPRIL
     Route: 065
  8. COSENTYX [Suspect]
     Active Substance: SECUKINUMAB
     Dosage: 300 MG, WEEKLY
     Route: 058
  9. COSENTYX [Suspect]
     Active Substance: SECUKINUMAB
     Indication: PSORIASIS
     Dosage: 300 MG, MONTHLY
     Route: 058
  10. COSENTYX [Suspect]
     Active Substance: SECUKINUMAB
     Dosage: 300 MG, WEEKLY
     Route: 058
  11. ATENOLOL. [Concomitant]
     Active Substance: ATENOLOL
     Route: 065
  12. AMLODIPINE BESILATE [Suspect]
     Active Substance: AMLODIPINE BESYLATE
     Route: 065
  13. CICLOSPORIN [Suspect]
     Active Substance: CYCLOSPORINE
     Route: 065
  14. COSENTYX [Suspect]
     Active Substance: SECUKINUMAB
     Dosage: 300 MG, WEEKLY
     Route: 058
  15. LOPROX [Concomitant]
     Active Substance: CICLOPIROX\CICLOPIROX OLAMINE
     Route: 065

REACTIONS (13)
  - Confusional state [Not Recovered/Not Resolved]
  - Dyspnoea [Not Recovered/Not Resolved]
  - Cardiovascular disorder [Not Recovered/Not Resolved]
  - Peripheral swelling [Not Recovered/Not Resolved]
  - Lung disorder [Not Recovered/Not Resolved]
  - Dysphonia [Not Recovered/Not Resolved]
  - Hypertension [Not Recovered/Not Resolved]
  - Localised infection [Not Recovered/Not Resolved]
  - Psoriasis [Not Recovered/Not Resolved]
  - Nausea [Not Recovered/Not Resolved]
  - Pain in extremity [Not Recovered/Not Resolved]
  - Diarrhoea [Not Recovered/Not Resolved]
  - Infection [Not Recovered/Not Resolved]
